FAERS Safety Report 15288798 (Version 2)
Quarter: 2018Q4

REPORT INFORMATION
  Report Type: Report from Study
  Country: US (occurrence: US)
  Receive Date: 20180817
  Receipt Date: 20180824
  Transmission Date: 20190204
  Serious: Yes (Other)
  Sender: FDA-Public Use
  Company Number: US-ALLERGAN-1840041US

PATIENT
  Age: 86 Year
  Sex: Female

DRUGS (2)
  1. ESCITALOPRAM OXALATE 5MG TAB [Suspect]
     Active Substance: ESCITALOPRAM OXALATE
     Indication: DEPRESSION
     Dosage: 10 MG, UNKNOWN
     Route: 065
  2. ESCITALOPRAM OXALATE 5MG TAB [Suspect]
     Active Substance: ESCITALOPRAM OXALATE
     Indication: ANXIETY

REACTIONS (2)
  - Fatigue [Unknown]
  - Transient ischaemic attack [Unknown]

NARRATIVE: CASE EVENT DATE: 201409
